FAERS Safety Report 4388691-5 (Version None)
Quarter: 2004Q2

REPORT INFORMATION
  Report Type: 
  Country: None (occurrence: None)
  Receive Date: 20040624
  Receipt Date: 20040608
  Transmission Date: 20050107
  Serious: Yes (Hospitalization)
  Sender: FDA-Public Use
  Company Number: DSA_24530_2004

PATIENT
  Age: 43 Year
  Sex: Female

DRUGS (1)
  1. LORAZEPAM [Suspect]
     Dosage: 20 MG ONCE PO
     Route: 048
     Dates: start: 20040606, end: 20040606

REACTIONS (3)
  - HEART RATE INCREASED [None]
  - INTENTIONAL OVERDOSE [None]
  - VOMITING [None]
